FAERS Safety Report 11608093 (Version 1)
Quarter: 2015Q4

REPORT INFORMATION
  Report Type: Report from Study
  Country: US (occurrence: US)
  Receive Date: 20151007
  Receipt Date: 20151007
  Transmission Date: 20160304
  Serious: Yes (Hospitalization)
  Sender: FDA-Public Use
  Company Number: US-ABBVIE-15P-163-1474242-00

PATIENT
  Age: 34 Year
  Sex: Female

DRUGS (1)
  1. LUPRON DEPOT [Suspect]
     Active Substance: LEUPROLIDE ACETATE
     Indication: ENDOMETRIOSIS
     Route: 058
     Dates: start: 1999

REACTIONS (8)
  - Anaemia [Unknown]
  - Pain [Unknown]
  - Hysterectomy [Unknown]
  - Hot flush [Unknown]
  - Ovarian cyst [Unknown]
  - Mood swings [Unknown]
  - Menorrhagia [Unknown]
  - Alopecia [Unknown]

NARRATIVE: CASE EVENT DATE: 1999
